FAERS Safety Report 23058473 (Version 2)
Quarter: 2023Q4

REPORT INFORMATION
  Report Type: Spontaneous
  Country: GB (occurrence: GB)
  Receive Date: 20231012
  Receipt Date: 20231023
  Transmission Date: 20240109
  Serious: Yes (Other)
  Sender: FDA-Public Use
  Company Number: None

PATIENT
  Sex: Female

DRUGS (4)
  1. ARIPIPRAZOLE [Suspect]
     Active Substance: ARIPIPRAZOLE
     Indication: Product used for unknown indication
  2. EPILIM [Suspect]
     Active Substance: VALPROATE SODIUM
     Indication: Product used for unknown indication
  3. PROCYCLIDINE [Concomitant]
     Active Substance: PROCYCLIDINE
  4. VORTIOXETINE [Concomitant]
     Active Substance: VORTIOXETINE

REACTIONS (3)
  - Blepharospasm [Recovered/Resolved]
  - Dry mouth [Recovering/Resolving]
  - Gastrointestinal disorder [Recovered/Resolved]
